FAERS Safety Report 11566972 (Version 1)
Quarter: 2015Q3

REPORT INFORMATION
  Report Type: Spontaneous
  Country: US (occurrence: US)
  Receive Date: 20150916
  Receipt Date: 20150916
  Transmission Date: 20151125
  Serious: No
  Sender: FDA-Public Use
  Company Number: US-ELI_LILLY_AND_COMPANY-US200907000429

PATIENT
  Age: 60 Year
  Sex: Female

DRUGS (8)
  1. DIGOXIN. [Concomitant]
     Active Substance: DIGOXIN
  2. FORTEO [Suspect]
     Active Substance: TERIPARATIDE
     Indication: BONE DISORDER
     Dosage: UNK, UNK
     Dates: start: 2007
  3. VICODIN [Concomitant]
     Active Substance: ACETAMINOPHEN\HYDROCODONE BITARTRATE
  4. ANALGESICS [Concomitant]
     Active Substance: UNSPECIFIED INGREDIENT
     Indication: PAIN
  5. NEXIUM [Concomitant]
     Active Substance: ESOMEPRAZOLE MAGNESIUM
  6. FORTEO [Suspect]
     Active Substance: TERIPARATIDE
     Dosage: UNK, QOD
     Dates: start: 200905, end: 20090627
  7. BONIVA [Concomitant]
     Active Substance: IBANDRONATE SODIUM
     Indication: BONE DISORDER
     Dates: start: 2007
  8. ZOFRAN [Concomitant]
     Active Substance: ONDANSETRON HYDROCHLORIDE

REACTIONS (23)
  - Scoliosis [Unknown]
  - Malaise [Unknown]
  - Tachycardia [Unknown]
  - Eating disorder [Recovered/Resolved]
  - Back pain [Unknown]
  - Bone pain [Unknown]
  - Arthralgia [Unknown]
  - Dislocation of vertebra [Unknown]
  - Musculoskeletal chest pain [Unknown]
  - Migraine [Unknown]
  - Swelling [Unknown]
  - Influenza like illness [Unknown]
  - Feeling abnormal [Unknown]
  - Rib fracture [Unknown]
  - Stress fracture [Unknown]
  - Pain [Unknown]
  - Abdominal pain upper [Unknown]
  - Vomiting [Unknown]
  - Immune system disorder [Unknown]
  - Haematoma [Recovered/Resolved]
  - Headache [Unknown]
  - Coccydynia [Unknown]
  - Gingival disorder [Unknown]

NARRATIVE: CASE EVENT DATE: 2007
